FAERS Safety Report 5512644-4 (Version None)
Quarter: 2007Q4

REPORT INFORMATION
  Report Type: 
  Country: None (occurrence: None)
  Receive Date: 20071107
  Receipt Date: 20071023
  Transmission Date: 20080405
  Serious: Yes (Disabling)
  Sender: FDA-Public Use
  Company Number: 2007S1010812

PATIENT
  Age: 72 Year
  Sex: Female

DRUGS (5)
  1. MIRTAZAPINE [Suspect]
     Indication: AGITATION
     Dosage: 30 MG;
     Dates: start: 20070907
  2. MIRTAZAPINE [Suspect]
     Indication: DEPRESSION
     Dosage: 30 MG;
     Dates: start: 20070907
  3. RISPERIDONE [Suspect]
     Indication: AGITATION
     Dosage: 1 MG;
     Dates: start: 20070907
  4. RISPERIDONE [Suspect]
     Indication: DEPRESSION
     Dosage: 1 MG;
     Dates: start: 20070907
  5. LORAZEPAM [Concomitant]

REACTIONS (1)
  - CEREBROVASCULAR ACCIDENT [None]
